FAERS Safety Report 10346076 (Version 2)
Quarter: 2014Q3

REPORT INFORMATION
  Report Type: Spontaneous
  Country: US (occurrence: US)
  Receive Date: 20140728
  Receipt Date: 20140728
  Transmission Date: 20150326
  Serious: Yes (Hospitalization, Other)
  Sender: FDA-Public Use
  Company Number: US-009507513-2011SP003660

PATIENT
  Sex: Female
  Weight: 62.14 kg

DRUGS (3)
  1. NUVARING [Suspect]
     Active Substance: ETHINYL ESTRADIOL\ETONOGESTREL
     Dates: start: 200712, end: 200803
  2. NUVARING [Suspect]
     Active Substance: ETHINYL ESTRADIOL\ETONOGESTREL
     Indication: CONTRACEPTION
     Dates: start: 200806, end: 200902
  3. NUVARING [Suspect]
     Active Substance: ETHINYL ESTRADIOL\ETONOGESTREL
     Dates: start: 200806, end: 200902

REACTIONS (8)
  - Pleural effusion [Unknown]
  - Embolism venous [Unknown]
  - Breast prosthesis implantation [Unknown]
  - Muscle spasms [Unknown]
  - Pulmonary infarction [Unknown]
  - Pulmonary embolism [Recovering/Resolving]
  - Atelectasis [Unknown]
  - Limb injury [Unknown]

NARRATIVE: CASE EVENT DATE: 200805
